FAERS Safety Report 11172188 (Version 1)
Quarter: 2015Q2

REPORT INFORMATION
  Report Type: Spontaneous
  Country: NL (occurrence: NL)
  Receive Date: 20150608
  Receipt Date: 20150608
  Transmission Date: 20150821
  Serious: Yes (Other)
  Sender: FDA-Public Use
  Company Number: NL-B.I. PHARMACEUTICALS,INC./RIDGEFIELD-2015-BI-28475NL

PATIENT
  Age: 49 Year
  Sex: Female
  Weight: 52 kg

DRUGS (5)
  1. SIFROL [Suspect]
     Active Substance: PRAMIPEXOLE
     Dosage: 0.088 MG
     Route: 065
     Dates: start: 200905
  2. NITRAZEPAM [Concomitant]
     Active Substance: NITRAZEPAM
     Indication: INSOMNIA
     Route: 065
     Dates: start: 20100505, end: 20150516
  3. SIFROL [Suspect]
     Active Substance: PRAMIPEXOLE
     Dosage: 0.264 MG
     Route: 065
     Dates: start: 2014
  4. SIFROL [Suspect]
     Active Substance: PRAMIPEXOLE
     Dosage: 0.176 MG
     Route: 065
     Dates: start: 2009
  5. SIFROL [Suspect]
     Active Substance: PRAMIPEXOLE
     Indication: RESTLESS LEGS SYNDROME
     Route: 065
     Dates: start: 20090511, end: 20150516

REACTIONS (15)
  - Eating disorder [Unknown]
  - Drug dependence [Unknown]
  - Urticaria [Not Recovered/Not Resolved]
  - Withdrawal syndrome [Not Recovered/Not Resolved]
  - Mood altered [Unknown]
  - Vestibular disorder [Unknown]
  - Insomnia [Not Recovered/Not Resolved]
  - Malaise [Unknown]
  - Negative thoughts [Unknown]
  - Dizziness [Unknown]
  - Nausea [Unknown]
  - Somnolence [Not Recovered/Not Resolved]
  - Quality of life decreased [Unknown]
  - Photosensitivity reaction [Unknown]
  - Hyperacusis [Unknown]

NARRATIVE: CASE EVENT DATE: 20090610
